FAERS Safety Report 10636786 (Version 1)
Quarter: 2014Q4

REPORT INFORMATION
  Report Type: Spontaneous
  Country: US (occurrence: None)
  Receive Date: 20141203
  Receipt Date: 20141203
  Transmission Date: 20150529
  Serious: Yes (Other)
  Sender: FDA-Public Use
  Company Number: None

PATIENT
  Age: 11 Year
  Sex: Female
  Weight: 32.7 kg

DRUGS (6)
  1. MELATONIN LIQUID [Concomitant]
  2. ENBREL [Suspect]
     Active Substance: ETANERCEPT
     Indication: JUVENILE IDIOPATHIC ARTHRITIS
     Route: 058
     Dates: start: 20140702, end: 20141112
  3. LEUCOVORIN CALCIUM. [Concomitant]
     Active Substance: LEUCOVORIN CALCIUM
  4. DAYTRANA [Concomitant]
     Active Substance: METHYLPHENIDATE
  5. ADVIL [Concomitant]
     Active Substance: IBUPROFEN
  6. METHOTREXATE INJECTION [Suspect]
     Active Substance: METHOTREXATE
     Indication: JUVENILE IDIOPATHIC ARTHRITIS
     Route: 058
     Dates: start: 201404

REACTIONS (8)
  - Attention deficit/hyperactivity disorder [None]
  - Educational problem [None]
  - Personality change [None]
  - Emotional poverty [None]
  - Family stress [None]
  - Condition aggravated [None]
  - Aggression [None]
  - Anger [None]

NARRATIVE: CASE EVENT DATE: 201407
